FAERS Safety Report 6843653-0 (Version None)
Quarter: 2010Q3

REPORT INFORMATION
  Report Type: 
  Country: None (occurrence: None)
  Receive Date: 20100714
  Receipt Date: 20100714
  Transmission Date: 20110219
  Serious: Yes (Life-Threatening, Other)
  Sender: FDA-Public Use
  Company Number: None

PATIENT
  Age: 36 Year
  Sex: Female
  Weight: 81.6475 kg

DRUGS (2)
  1. PROLIXIN [Suspect]
     Indication: PSYCHOTIC DISORDER
     Dosage: NOT SURE
  2. PROZAC [Suspect]
     Dosage: NOT SURE I HAVE TO PICK UP MY RECORDS ON WED. 14

REACTIONS (5)
  - BALANCE DISORDER [None]
  - DRUG INTERACTION [None]
  - GENERAL PHYSICAL HEALTH DETERIORATION [None]
  - MEDICATION ERROR [None]
  - MEMORY IMPAIRMENT [None]
